FAERS Safety Report 12450334 (Version 1)
Quarter: 2016Q2

REPORT INFORMATION
  Report Type: Spontaneous
  Country: US (occurrence: US)
  Receive Date: 20160609
  Receipt Date: 20160609
  Transmission Date: 20160815
  Serious: No
  Sender: FDA-Public Use
  Company Number: US-PFIZER INC-2016270769

PATIENT
  Age: 86 Year
  Sex: Female

DRUGS (4)
  1. SUTENT [Suspect]
     Active Substance: SUNITINIB MALATE
     Indication: PANCREATIC NEUROENDOCRINE TUMOUR
     Dosage: 25 MG, DAILY
     Dates: start: 20160509
  2. METOPROLOL. [Concomitant]
     Active Substance: METOPROLOL
     Dosage: UNK
  3. COMPAZINE [Concomitant]
     Active Substance: PROCHLORPERAZINE MALEATE
     Dosage: UNK
  4. COZAAR [Concomitant]
     Active Substance: LOSARTAN POTASSIUM
     Dosage: UNK

REACTIONS (11)
  - Dizziness [Unknown]
  - Condition aggravated [Unknown]
  - Somnolence [Unknown]
  - Nausea [Unknown]
  - Asthenia [Unknown]
  - Confusional state [Unknown]
  - Incoherent [Unknown]
  - Anxiety [Unknown]
  - Hypertension [Unknown]
  - Memory impairment [Unknown]
  - Tremor [Unknown]
